FAERS Safety Report 13675064 (Version 2)
Quarter: 2017Q3

REPORT INFORMATION
  Report Type: Spontaneous
  Country: US (occurrence: US)
  Receive Date: 20170621
  Receipt Date: 20170803
  Transmission Date: 20171127
  Serious: No
  Sender: FDA-Public Use
  Company Number: US-PFIZER INC-2017269306

PATIENT
  Age: 70 Year
  Sex: Female

DRUGS (2)
  1. EUCRISA [Suspect]
     Active Substance: CRISABOROLE
     Indication: DERMATITIS CONTACT
     Dosage: UNK
     Route: 061
     Dates: start: 20170515
  2. EUCRISA [Suspect]
     Active Substance: CRISABOROLE
     Dosage: TWICE A DAY FOR TWO WEEKS
     Route: 061
     Dates: start: 20170607

REACTIONS (2)
  - Product use in unapproved indication [Unknown]
  - Skin discolouration [Unknown]

NARRATIVE: CASE EVENT DATE: 20170515
